FAERS Safety Report 8983917 (Version 1)
Quarter: 2012Q4

REPORT INFORMATION
  Report Type: Spontaneous
  Country: US (occurrence: None)
  Receive Date: 20121218
  Receipt Date: 20121218
  Transmission Date: 20130627
  Serious: Yes (Hospitalization, Disabling, Other)
  Sender: FDA-Public Use
  Company Number: None

PATIENT
  Age: 55 Year
  Sex: Male
  Weight: 70.31 kg

DRUGS (2)
  1. SIMVASTATIN [Suspect]
     Dates: start: 20121010, end: 20121101
  2. SIMVASTATIN [Suspect]
     Dates: start: 20121121, end: 20121124

REACTIONS (6)
  - Retinal artery occlusion [None]
  - Neck pain [None]
  - Myalgia [None]
  - Back pain [None]
  - Musculoskeletal pain [None]
  - Burning sensation [None]
